FAERS Safety Report 9057294 (Version 2)
Quarter: 2013Q1

REPORT INFORMATION
  Report Type: Spontaneous
  Country: GB (occurrence: GB)
  Receive Date: 20130131
  Receipt Date: 20130304
  Transmission Date: 20140127
  Serious: No
  Sender: FDA-Public Use
  Company Number: GB-GLAXOSMITHKLINE-B0861771A

PATIENT
  Sex: Female

DRUGS (5)
  1. MALARONE [Suspect]
     Indication: MALARIA PROPHYLAXIS
     Dosage: 1TAB PER DAY
     Route: 048
     Dates: start: 201203
  2. BENDROFLUMETHIAZIDE [Concomitant]
  3. LEVOTHYROXINE [Concomitant]
  4. RAMIPRIL [Concomitant]
  5. OMEPRAZOLE [Concomitant]

REACTIONS (3)
  - Aphagia [Recovered/Resolved]
  - Diarrhoea [Recovered/Resolved]
  - Weight decreased [Recovered/Resolved]
